FAERS Safety Report 18199405 (Version 3)
Quarter: 2022Q3

REPORT INFORMATION
  Report Type: Spontaneous
  Country: US (occurrence: US)
  Receive Date: 20200826
  Receipt Date: 20220823
  Transmission Date: 20221027
  Serious: Yes (Other)
  Sender: FDA-Public Use
  Company Number: US-PFIZER INC-2020329896

PATIENT
  Age: 58 Year
  Sex: Female
  Weight: 108 kg

DRUGS (10)
  1. DOCETAXEL [Suspect]
     Active Substance: DOCETAXEL
     Indication: Chemotherapy
     Dosage: UNK
     Dates: start: 20171221, end: 20180423
  2. TAXOTERE [Suspect]
     Active Substance: DOCETAXEL
     Indication: Triple positive breast cancer
     Dosage: 75 MG/M2 CYCLIC (06 CYCLES)
     Route: 042
     Dates: start: 20171221, end: 20180423
  3. PARAPLATIN [Concomitant]
     Active Substance: CARBOPLATIN
     Indication: Triple positive breast cancer
     Dosage: CYCLIC (750 MG, 600 MG, 756 MG)
     Dates: start: 20171221, end: 20180423
  4. NEULASTA [Concomitant]
     Active Substance: PEGFILGRASTIM
     Dosage: 6 MG, CYCLIC
     Dates: start: 20180302
  5. NEULASTA [Concomitant]
     Active Substance: PEGFILGRASTIM
     Dosage: 6 MG, CYCLIC
     Route: 058
     Dates: start: 20180323
  6. NEULASTA [Concomitant]
     Active Substance: PEGFILGRASTIM
     Dosage: 6 MG, CYCLIC
     Dates: start: 20180413
  7. HERCEPTIN [Concomitant]
     Active Substance: TRASTUZUMAB
     Indication: Triple positive breast cancer
     Dosage: 6 MG/KG, CYCLIC
     Route: 042
     Dates: start: 20180507, end: 20181210
  8. PERJETA [Concomitant]
     Active Substance: PERTUZUMAB
     Indication: Triple positive breast cancer
     Dosage: 420 MG, CYCLIC
     Route: 042
     Dates: start: 20180302
  9. PERJETA [Concomitant]
     Active Substance: PERTUZUMAB
     Dosage: 420 MG, CYCLIC
     Route: 042
     Dates: start: 20180323
  10. PERJETA [Concomitant]
     Active Substance: PERTUZUMAB
     Dosage: 420 MG, CYCLIC
     Dates: start: 20180413

REACTIONS (3)
  - Lacrimation increased [Unknown]
  - Lacrimal structure injury [Unknown]
  - Eye injury [Unknown]
